FAERS Safety Report 23224917 (Version 1)
Quarter: 2023Q4

REPORT INFORMATION
  Report Type: Spontaneous
  Country: ES (occurrence: ES)
  Receive Date: 20231124
  Receipt Date: 20231124
  Transmission Date: 20240110
  Serious: Yes (Other)
  Sender: FDA-Public Use
  Company Number: ES-BAXTER-2023BAX035544

PATIENT

DRUGS (22)
  1. BORTEZOMIB [Suspect]
     Active Substance: BORTEZOMIB
     Indication: Plasma cell myeloma refractory
     Dosage: UNK (MOST RECENT TREATMENT)
     Route: 065
     Dates: start: 20230427
  2. BORTEZOMIB [Suspect]
     Active Substance: BORTEZOMIB
     Dosage: UNK (FIRST LINE TREATMENT)
     Route: 065
     Dates: start: 20200825
  3. DOXORUBICIN [Suspect]
     Active Substance: DOXORUBICIN
     Indication: Plasma cell myeloma refractory
     Dosage: UNK, (FIFTH LINE TREATMENT)
     Route: 065
     Dates: start: 20211108
  4. DOXORUBICIN [Suspect]
     Active Substance: DOXORUBICIN
     Dosage: UNK (SECOND LINE TREATMENT)
     Route: 065
     Dates: start: 20210310
  5. LENALIDOMIDE [Suspect]
     Active Substance: LENALIDOMIDE
     Indication: Plasma cell myeloma refractory
     Dosage: UNK (FIRST LINE TREATMENT)
     Route: 065
     Dates: start: 20200825
  6. MELPHALAN [Suspect]
     Active Substance: MELPHALAN
     Indication: Plasma cell myeloma refractory
     Dosage: UNK (THIRD LINE TREATMENT)
     Route: 065
     Dates: start: 20210525
  7. MELPHALAN [Suspect]
     Active Substance: MELPHALAN
     Dosage: UNK (FOURTH LINE TREATMENT)
     Route: 065
     Dates: start: 20210707
  8. CISPLATIN [Suspect]
     Active Substance: CISPLATIN
     Indication: Plasma cell myeloma refractory
     Dosage: UNK (SECOND LINE TREATMENT)
     Route: 065
     Dates: start: 20210310
  9. CISPLATIN [Suspect]
     Active Substance: CISPLATIN
     Dosage: UNK (FIFTH LINE TREATMENT)
     Route: 065
     Dates: start: 20211108
  10. CYCLOPHOSPHAMIDE [Suspect]
     Active Substance: CYCLOPHOSPHAMIDE
     Indication: Plasma cell myeloma refractory
     Dosage: UNK (SECOND LINE TREATMENT)
     Route: 065
     Dates: start: 20210310
  11. CARFILZOMIB [Suspect]
     Active Substance: CARFILZOMIB
     Indication: Plasma cell myeloma refractory
     Dosage: UNK (FIFTH LINE TREATMENT)
     Route: 065
     Dates: start: 20211108
  12. CARFILZOMIB [Suspect]
     Active Substance: CARFILZOMIB
     Dosage: UNK (SECOND LINE TREATMENT)
     Dates: start: 20210310
  13. DEXAMETHASONE [Suspect]
     Active Substance: DEXAMETHASONE
     Indication: Plasma cell myeloma refractory
     Dosage: UNK (SIXTH LINE TREATMENT)
     Route: 065
     Dates: start: 20220721, end: 20230426
  14. DEXAMETHASONE [Suspect]
     Active Substance: DEXAMETHASONE
     Dosage: UNK (SECOND LINE TREATMENT)
     Route: 065
     Dates: start: 20210310, end: 20210420
  15. DEXAMETHASONE [Suspect]
     Active Substance: DEXAMETHASONE
     Dosage: UNK (FIRST LINE TREATMENT)
     Route: 065
     Dates: start: 20200825, end: 20210211
  16. DEXAMETHASONE [Suspect]
     Active Substance: DEXAMETHASONE
     Dosage: UNK (MOST RECENT TREATMENT)
     Route: 065
     Dates: start: 20230427, end: 20231106
  17. DARATUMUMAB [Suspect]
     Active Substance: DARATUMUMAB
     Indication: Plasma cell myeloma refractory
     Dosage: UNK (MOST RECENT TREATMENT)
     Route: 065
     Dates: start: 20230427
  18. ETOPOSIDE [Suspect]
     Active Substance: ETOPOSIDE
     Indication: Plasma cell myeloma refractory
     Dosage: UNK (SECOND LINE TREATMENT)
     Route: 065
     Dates: start: 20210310
  19. ETOPOSIDE [Suspect]
     Active Substance: ETOPOSIDE
     Dosage: UNK (FIFTH LINE TREATMENT)
     Route: 065
     Dates: start: 20211108
  20. ISATUXIMAB [Suspect]
     Active Substance: ISATUXIMAB
     Indication: Plasma cell myeloma refractory
     Dosage: UNK (SIXTH LINE TREATMENT)
     Route: 065
     Dates: start: 20220721
  21. POMALIDOMIDE [Suspect]
     Active Substance: POMALIDOMIDE
     Indication: Plasma cell myeloma refractory
     Dosage: UNK (SIXTH LINE TREATMENT)
     Route: 065
     Dates: start: 20220721
  22. THALIDOMIDE [Suspect]
     Active Substance: THALIDOMIDE
     Indication: Plasma cell myeloma refractory
     Dosage: UNK (MOST RECENT TREATMENT)
     Route: 065
     Dates: start: 20230427

REACTIONS (1)
  - Plasma cell myeloma [Unknown]
